FAERS Safety Report 11584570 (Version 1)
Quarter: 2015Q4

REPORT INFORMATION
  Report Type: Spontaneous
  Country: FR (occurrence: FR)
  Receive Date: 20151001
  Receipt Date: 20151001
  Transmission Date: 20160304
  Serious: Yes (Hospitalization)
  Sender: FDA-Public Use
  Company Number: FR-SUN PHARMACEUTICAL INDUSTRIES LTD-2015RR-103722

PATIENT

DRUGS (4)
  1. ESOMEPRAZOLE [Suspect]
     Active Substance: ESOMEPRAZOLE
     Indication: PRODUCT USED FOR UNKNOWN INDICATION
     Dosage: UNK
     Route: 042
     Dates: start: 20150529, end: 20150608
  2. ROCEPHINE [Suspect]
     Active Substance: CEFTRIAXONE SODIUM
     Indication: DIARRHOEA
     Dosage: 1 G, QD
     Route: 042
     Dates: start: 20150529, end: 20150531
  3. TIENAM [Suspect]
     Active Substance: CILASTATIN SODIUM\IMIPENEM
     Indication: DIARRHOEA
     Dosage: 1 G BID AND THEN 500 MG TID
     Route: 042
     Dates: start: 20150603, end: 20150608
  4. FLAGYL [Suspect]
     Active Substance: METRONIDAZOLE\METRONIDAZOLE HYDROCHLORIDE
     Indication: DIARRHOEA
     Dosage: 500 MG, TID
     Route: 042
     Dates: start: 20150529, end: 20150608

REACTIONS (5)
  - Cholestasis [Recovered/Resolved]
  - Eosinophilia [Recovered/Resolved]
  - Jaundice [Recovered/Resolved]
  - Rash morbilliform [Recovered/Resolved]
  - Urticaria [Recovered/Resolved]

NARRATIVE: CASE EVENT DATE: 20150531
